FAERS Safety Report 7263879-4 (Version None)
Quarter: 2011Q1

REPORT INFORMATION
  Report Type: 
  Country: None (occurrence: None)
  Receive Date: 20110130
  Receipt Date: 20101206
  Transmission Date: 20110831
  Serious: No
  Sender: FDA-Public Use
  Company Number: US-ABBOTT-10P-163-0690147-00

PATIENT
  Sex: Male
  Weight: 98.972 kg

DRUGS (2)
  1. FISH OIL [Concomitant]
     Indication: PRODUCT USED FOR UNKNOWN INDICATION
  2. HUMIRA [Suspect]
     Indication: ANKYLOSING SPONDYLITIS
     Dates: start: 20100522, end: 20101017

REACTIONS (4)
  - ARTHRALGIA [None]
  - NERVE INJURY [None]
  - PAIN IN EXTREMITY [None]
  - MYALGIA [None]
